FAERS Safety Report 10204968 (Version 1)
Quarter: 2014Q2

REPORT INFORMATION
  Report Type: Spontaneous
  Country: US (occurrence: None)
  Receive Date: 20140527
  Receipt Date: 20140527
  Transmission Date: 20141212
  Serious: Yes (Hospitalization)
  Sender: FDA-Public Use
  Company Number: None

PATIENT
  Age: 74 Year
  Sex: Female
  Weight: 72.58 kg

DRUGS (1)
  1. HYDRALAZINE 25MG HYDROCHLORIDE TAB [Suspect]
     Indication: HYPERTENSION
     Dosage: 1/4, ONCE DAILY, TAKEN BY MOUTH
     Route: 048
     Dates: start: 20140518, end: 20140518

REACTIONS (2)
  - Vomiting [None]
  - Loss of consciousness [None]
